FAERS Safety Report 22388730 (Version 1)
Quarter: 2023Q2

REPORT INFORMATION
  Report Type: Spontaneous
  Country: IT (occurrence: IT)
  Receive Date: 20230531
  Receipt Date: 20230531
  Transmission Date: 20230721
  Serious: Yes (Hospitalization, Other)
  Sender: FDA-Public Use
  Company Number: IT-GENEYORK-2023PPLIT00018

PATIENT
  Age: 74 Year
  Sex: Female

DRUGS (5)
  1. PREDNISONE [Suspect]
     Active Substance: PREDNISONE
     Indication: Polymyalgia rheumatica
     Route: 065
  2. PREDNISONE [Suspect]
     Active Substance: PREDNISONE
     Route: 065
  3. ASPIRIN [Concomitant]
     Active Substance: ASPIRIN
     Indication: Product used for unknown indication
     Route: 065
  4. TICAGRELOR [Concomitant]
     Active Substance: TICAGRELOR
     Indication: Product used for unknown indication
     Route: 065
  5. HEPARIN [Concomitant]
     Active Substance: HEPARIN SODIUM
     Indication: Product used for unknown indication
     Route: 065

REACTIONS (2)
  - Adrenocortical insufficiency acute [Recovered/Resolved]
  - Drug withdrawal syndrome [Recovered/Resolved]
